FAERS Safety Report 9351427 (Version 2)
Quarter: 2013Q2

REPORT INFORMATION
  Report Type: Spontaneous
  Country: AU (occurrence: AU)
  Receive Date: 20130617
  Receipt Date: 20130617
  Transmission Date: 20140414
  Serious: Yes (Hospitalization)
  Sender: FDA-Public Use
  Company Number: AU-NICOBRDEVP-2013-02312

PATIENT
  Age: 75 Year
  Sex: Female
  Weight: 75 kg

DRUGS (11)
  1. OXALIPLATIN (UNKNOWN) [Suspect]
     Indication: COLORECTAL CANCER METASTATIC
     Dosage: 112 MG
     Route: 042
     Dates: start: 20121121
  2. OXALIPLATIN (UNKNOWN) [Suspect]
     Dosage: 112 MG, DAILY
     Route: 042
     Dates: start: 20120911
  3. TIVOZANIB [Suspect]
     Indication: COLORECTAL CANCER METASTATIC
     Dosage: 1 MG
     Route: 048
     Dates: start: 20121121
  4. FLUOROURACIL [Suspect]
     Indication: COLORECTAL CANCER METASTATIC
     Dosage: BOLUS STOPPED AND NEVER RESTARTED
     Route: 042
     Dates: start: 20120911, end: 20121010
  5. FLUOROURACIL [Suspect]
     Dosage: ONLY IV INFUSION CONTINUED
     Dates: start: 20120911
  6. FLUOROURACIL [Suspect]
     Dosage: ONLY IV INFUSION CONTINUED
     Route: 042
     Dates: start: 20121121
  7. LEUCOVORIN CALCIUM /00566702/ [Suspect]
     Indication: COLORECTAL CANCER METASTATIC
     Dosage: 692 MG
     Route: 042
     Dates: start: 20121121
  8. LEUCOVORIN CALCIUM [Suspect]
     Dosage: 730 MG
     Route: 042
     Dates: start: 20120911
  9. METOCLOPRAMIDE [Concomitant]
     Indication: PRODUCT USED FOR UNKNOWN INDICATION
     Dosage: UNK
     Route: 065
     Dates: start: 20120911
  10. LOPERAMIDE [Concomitant]
     Indication: PRODUCT USED FOR UNKNOWN INDICATION
     Dosage: UNK
     Route: 065
     Dates: start: 20120911
  11. IMIPEM                             /00755201/ [Concomitant]
     Indication: PRODUCT USED FOR UNKNOWN INDICATION
     Dosage: UNK
     Route: 065
     Dates: start: 20121022, end: 20121029

REACTIONS (3)
  - Mobility decreased [Recovered/Resolved]
  - Muscular weakness [Unknown]
  - Fatigue [None]
